FAERS Safety Report 18800612 (Version 1)
Quarter: 2021Q1

REPORT INFORMATION
  Report Type: Spontaneous
  Country: US (occurrence: US)
  Receive Date: 20210128
  Receipt Date: 20210128
  Transmission Date: 20210419
  Serious: No
  Sender: FDA-Public Use
  Company Number: US-ABBVIE-20K-163-3527216-00

PATIENT
  Age: 37 Year
  Sex: Female
  Weight: 74.46 kg

DRUGS (3)
  1. LETROZOLE. [Concomitant]
     Active Substance: LETROZOLE
     Indication: BREAST CANCER
  2. LUPRON DEPOT [Suspect]
     Active Substance: LEUPROLIDE ACETATE
     Indication: THERAPEUTIC OVARIAN SUPPRESSION
     Route: 030
     Dates: start: 20200214, end: 20200511
  3. VERZENIO [Concomitant]
     Active Substance: ABEMACICLIB
     Indication: BREAST CANCER

REACTIONS (1)
  - Drug ineffective [Not Recovered/Not Resolved]

NARRATIVE: CASE EVENT DATE: 20200602
